FAERS Safety Report 5750072-7 (Version None)
Quarter: 2008Q2

REPORT INFORMATION
  Report Type: 
  Country: None (occurrence: None)
  Receive Date: 20080527
  Receipt Date: 20080516
  Transmission Date: 20081010
  Serious: No
  Sender: FDA-Public Use
  Company Number: JP-PFIZER INC-2008038344

PATIENT
  Sex: Female
  Weight: 52 kg

DRUGS (2)
  1. GENOTROPIN [Suspect]
     Indication: DWARFISM
     Dosage: DAILY DOSE:6.6MG-FREQ:WEEKLY
     Route: 058
  2. DEPAKENE [Concomitant]
     Route: 048

REACTIONS (1)
  - ELECTROENCEPHALOGRAM ABNORMAL [None]
